FAERS Safety Report 9229111 (Version 2)
Quarter: 2013Q3

REPORT INFORMATION
  Report Type: Spontaneous
  Country: US (occurrence: US)
  Receive Date: 20130412
  Receipt Date: 20130809
  Transmission Date: 20140515
  Serious: Yes (Other)
  Sender: FDA-Public Use
  Company Number: US-ASTRAZENECA-2013SE22161

PATIENT
  Age: 52 Year
  Sex: Male
  Weight: 81.2 kg

DRUGS (8)
  1. SEROQUEL [Suspect]
     Indication: SLEEP DISORDER
     Route: 048
  2. SEROQUEL [Suspect]
     Indication: BIPOLAR DISORDER
     Route: 048
  3. SEROQUEL [Suspect]
     Indication: SCHIZOPHRENIA
     Route: 048
  4. SEROQUEL [Suspect]
     Indication: SLEEP DISORDER
     Route: 048
     Dates: start: 20130301
  5. SEROQUEL [Suspect]
     Indication: BIPOLAR DISORDER
     Route: 048
     Dates: start: 20130301
  6. SEROQUEL [Suspect]
     Indication: SCHIZOPHRENIA
     Route: 048
     Dates: start: 20130301
  7. SOMA [Concomitant]
     Indication: PAIN
     Route: 048
     Dates: start: 20130327
  8. HYDROCODONE [Concomitant]
     Indication: PAIN
     Route: 048
     Dates: start: 20130327

REACTIONS (4)
  - Pain [Unknown]
  - Muscle spasms [Unknown]
  - Drug dose omission [Unknown]
  - Hernia [Unknown]
